FAERS Safety Report 4899512-6 (Version None)
Quarter: 2006Q1

REPORT INFORMATION
  Report Type: 
  Country: None (occurrence: None)
  Receive Date: 20060118
  Receipt Date: 20050620
  Transmission Date: 20060701
  Serious: No
  Sender: FDA-Public Use
  Company Number: 2005001158

PATIENT
  Age: 66 Year
  Sex: Female
  Weight: 52.1637 kg

DRUGS (14)
  1. TARCEVA [Suspect]
     Indication: NON-SMALL CELL LUNG CANCER
     Dosage: 150 MG (QD), ORAL
     Route: 048
     Dates: start: 20050618
  2. MAGISTROL (MEGESTROL) [Concomitant]
  3. ALBUTEROL [Concomitant]
  4. SYNTHROID [Concomitant]
  5. MS CONTIN [Concomitant]
  6. DEXAMETHASONE [Concomitant]
  7. FLECAINIDE ACETATE [Concomitant]
  8. CIPROFLOXACIN [Concomitant]
  9. XANAX [Concomitant]
  10. CARDIZEM [Concomitant]
  11. SENOKOT [Concomitant]
  12. MULTIVITAMIN [Concomitant]
  13. ALEVE [Concomitant]
  14. IRON (IRON) [Concomitant]

REACTIONS (7)
  - DISORIENTATION [None]
  - DRY SKIN [None]
  - HYPOTENSION [None]
  - PAIN [None]
  - RASH [None]
  - SKIN DISORDER [None]
  - SKIN EXFOLIATION [None]
